FAERS Safety Report 17427173 (Version 1)
Quarter: 2020Q1

REPORT INFORMATION
  Report Type: Spontaneous
  Country: FR (occurrence: FR)
  Receive Date: 20200218
  Receipt Date: 20200218
  Transmission Date: 20200409
  Serious: Yes (Death)
  Sender: FDA-Public Use
  Company Number: FR-TEVA-2020-FR-1186775

PATIENT
  Age: 33 Year
  Sex: Male

DRUGS (2)
  1. MORPHINE [Suspect]
     Active Substance: MORPHINE
     Route: 065
  2. BUPRENORPHINE. [Suspect]
     Active Substance: BUPRENORPHINE
     Route: 065

REACTIONS (1)
  - Drug abuse [Fatal]
